FAERS Safety Report 9742628 (Version 2)
Quarter: 2013Q4

REPORT INFORMATION
  Report Type: Spontaneous
  Country: US (occurrence: US)
  Receive Date: 20131210
  Receipt Date: 20131210
  Transmission Date: 20140711
  Serious: No
  Sender: FDA-Public Use
  Company Number: US-GILEAD-2009-0024704

PATIENT
  Age: 48 Year
  Sex: Female

DRUGS (7)
  1. LETAIRIS [Suspect]
     Indication: PULMONARY ARTERIAL HYPERTENSION
     Route: 048
     Dates: start: 20090116, end: 20091006
  2. SENSIPAR [Concomitant]
  3. PLAVIX [Concomitant]
  4. CLONIDINE [Concomitant]
  5. PRAVASTATIN [Concomitant]
  6. OMEPRAZOLE [Concomitant]
  7. AMLODIPINE [Concomitant]

REACTIONS (1)
  - Anaemia [Unknown]
